FAERS Safety Report 5498655-6 (Version None)
Quarter: 2007Q4

REPORT INFORMATION
  Report Type: 
  Country: None (occurrence: None)
  Receive Date: 20071026
  Receipt Date: 20071022
  Transmission Date: 20080405
  Serious: Yes (Hospitalization)
  Sender: FDA-Public Use
  Company Number: US-JNJFOC-20071005130

PATIENT
  Age: 81 Year
  Sex: Female

DRUGS (4)
  1. EXTRA STRENGTH TYLENOL [Suspect]
  2. EXTRA STRENGTH TYLENOL [Suspect]
     Indication: PYREXIA
     Dosage: 1.0 G EVERY 6 HOURS FOR 3 DAYS AND THEN AS NEEDED FOR 4 DAYS (7 DAYS TOTAL) PRIOR TO ADMISSION
  3. WARFARIN SODIUM [Interacting]
     Indication: ANTICOAGULANT THERAPY
     Dosage: 4-4.5 MG DAILY
  4. LABETALOL HCL [Concomitant]
     Indication: HYPERTENSION

REACTIONS (3)
  - DRUG INTERACTION [None]
  - GASTROINTESTINAL HAEMORRHAGE [None]
  - INTERNATIONAL NORMALISED RATIO INCREASED [None]
